FAERS Safety Report 8437815-9 (Version None)
Quarter: 2012Q2

REPORT INFORMATION
  Report Type: 
  Country: None (occurrence: None)
  Receive Date: 20120614
  Receipt Date: 20120607
  Transmission Date: 20120825
  Serious: Yes (Other)
  Sender: FDA-Public Use
  Company Number: US-ABBOTT-12P-163-0944036-00

PATIENT
  Sex: Male

DRUGS (5)
  1. PAXIL [Concomitant]
     Indication: OBSESSIVE-COMPULSIVE DISORDER
  2. AMLODIPINE [Concomitant]
     Indication: HYPERTENSION
  3. TRICORE [Concomitant]
     Indication: BLOOD CHOLESTEROL
  4. HUMIRA [Suspect]
     Indication: PSORIASIS
     Dates: start: 20120313
  5. AVALIDE [Concomitant]
     Indication: HYPERTENSION
     Dosage: 300/12.5MG QD

REACTIONS (2)
  - CYST [None]
  - PAIN [None]
